FAERS Safety Report 8332982-X (Version None)
Quarter: 2012Q2

REPORT INFORMATION
  Report Type: 
  Country: None (occurrence: None)
  Receive Date: 20120503
  Receipt Date: 20120426
  Transmission Date: 20120825
  Serious: Yes (Other)
  Sender: FDA-Public Use
  Company Number: PHHY2012AU036221

PATIENT
  Sex: Female

DRUGS (2)
  1. TRILEPTAL [Suspect]
     Dosage: 300MG MORNING AND 450MG NIGHT
  2. TRILEPTAL [Suspect]
     Indication: CONVULSION
     Dosage: 150MG MORNING AND 300MG NIGHT

REACTIONS (2)
  - WEIGHT INCREASED [None]
  - PRECOCIOUS PUBERTY [None]
